FAERS Safety Report 9155371 (Version 2)
Quarter: 2013Q1

REPORT INFORMATION
  Report Type: Spontaneous
  Country: US (occurrence: US)
  Receive Date: 20130311
  Receipt Date: 20130321
  Transmission Date: 20140127
  Serious: Yes (Death)
  Sender: FDA-Public Use
  Company Number: US-PFIZER INC-2013081985

PATIENT
  Age: 25 Month
  Sex: Male
  Weight: 13.5 kg

DRUGS (1)
  1. VERAPAMIL HCL [Suspect]
     Dosage: 6 DF OF 240 MG

REACTIONS (2)
  - Accidental overdose [Fatal]
  - Hypotension [Fatal]
